FAERS Safety Report 11370172 (Version 5)
Quarter: 2015Q3

REPORT INFORMATION
  Report Type: Report from Study
  Country: JP (occurrence: JP)
  Receive Date: 20150812
  Receipt Date: 20150923
  Transmission Date: 20151125
  Serious: No
  Sender: FDA-Public Use
  Company Number: JP-JNJFOC-20150806054

PATIENT
  Age: 52 Year
  Sex: Male
  Weight: 68 kg

DRUGS (4)
  1. TRESIBA [Concomitant]
     Active Substance: INSULIN DEGLUDEC
     Route: 051
     Dates: start: 20150226
  2. HUMALOG [Concomitant]
     Active Substance: INSULIN LISPRO
     Dosage: 14 UNITS MORNING, 14 UNITS AFTERNOON AND 13 UNITS EVENING.
     Route: 051
  3. CANAGLU [Suspect]
     Active Substance: CANAGLIFLOZIN
     Indication: TYPE 2 DIABETES MELLITUS
     Route: 048
     Dates: start: 20150108
  4. ATORVASTATIN [Concomitant]
     Active Substance: ATORVASTATIN
     Indication: DYSLIPIDAEMIA
     Dosage: BEFORE 16 THE WEEK OF TREATMENT PERIOD
     Route: 048

REACTIONS (2)
  - Retinal haemorrhage [Recovered/Resolved]
  - Hypoglycaemia [Unknown]

NARRATIVE: CASE EVENT DATE: 20150114
